FAERS Safety Report 10161966 (Version 2)
Quarter: 2014Q2

REPORT INFORMATION
  Report Type: Spontaneous
  Country: US (occurrence: US)
  Receive Date: 20140509
  Receipt Date: 20140602
  Transmission Date: 20141212
  Serious: No
  Sender: FDA-Public Use
  Company Number: US-ROXANE LABORATORIES, INC.-2014-RO-00719RO

PATIENT
  Age: 66 Year
  Sex: Female

DRUGS (2)
  1. MONTELUKAST SODIUM [Suspect]
     Indication: ASTHMA
     Dosage: 10 MG
     Route: 048
     Dates: start: 2013
  2. MONTELUKAST SODIUM [Suspect]
     Indication: MULTIPLE ALLERGIES

REACTIONS (5)
  - Oral discomfort [Recovered/Resolved]
  - Throat irritation [Recovered/Resolved]
  - Oral mucosal discolouration [Recovered/Resolved]
  - Saliva discolouration [Recovered/Resolved]
  - Product quality issue [Unknown]
